FAERS Safety Report 8790976 (Version 1)
Quarter: 2012Q4

REPORT INFORMATION
  Report Type: Spontaneous
  Country: US (occurrence: None)
  Receive Date: 20120907
  Receipt Date: 20120907
  Transmission Date: 20130627
  Serious: Yes (Hospitalization, Other)
  Sender: FDA-Public Use
  Company Number: TPA2012A02821

PATIENT
  Age: 63 Year
  Sex: Male
  Weight: 52.16 kg

DRUGS (11)
  1. ULORIC [Suspect]
     Indication: GOUTY TOPHUS
     Route: 048
     Dates: start: 201104, end: 2011
  2. ULORIC [Suspect]
     Indication: GOUTY ARTHRITIS
     Route: 048
     Dates: start: 201104, end: 2011
  3. ULORIC [Suspect]
     Indication: GOUTY TOPHUS
     Route: 048
     Dates: start: 2011, end: 201202
  4. ULORIC [Suspect]
     Indication: GOUTY ARTHRITIS
     Route: 048
     Dates: start: 2011, end: 201202
  5. ULORIC [Suspect]
     Indication: GOUTY TOPHUS
     Route: 048
     Dates: start: 201202, end: 201203
  6. ULORIC [Suspect]
     Indication: GOUTY ARTHRITIS
     Route: 048
     Dates: start: 201202, end: 201203
  7. ULORIC [Suspect]
     Indication: GOUTY TOPHUS
     Route: 048
     Dates: start: 20110405, end: 20120127
  8. ULORIC [Suspect]
     Indication: GOUTY ARTHRITIS
     Route: 048
     Dates: start: 20110405, end: 20120127
  9. ATORVASTATIN (ATORVASTATIN) [Concomitant]
  10. LISINOPRIL (LISINOPRIL) [Concomitant]
  11. GLIPIZIDE (GLIPIZIDE) [Concomitant]

REACTIONS (2)
  - Pancreatitis acute [None]
  - Pancreatic cyst [None]
